FAERS Safety Report 15209489 (Version 1)
Quarter: 2018Q3

REPORT INFORMATION
  Report Type: Spontaneous
  Country: ES (occurrence: ES)
  Receive Date: 20180727
  Receipt Date: 20180727
  Transmission Date: 20181010
  Serious: Yes (Hospitalization)
  Sender: FDA-Public Use
  Company Number: ES-TEVA-2018-ES-930898

PATIENT
  Age: 86 Year
  Sex: Female

DRUGS (5)
  1. CIPROFLOXACINO (2049A) [Suspect]
     Active Substance: CIPROFLOXACIN
     Indication: URINARY TRACT INFECTION
     Route: 042
     Dates: start: 20180314, end: 20180314
  2. PARAPRES PLUS 16 MG/12,5 MG COMPRIMIDOS, 28 COMPRIMIDOS [Concomitant]
     Indication: ESSENTIAL HYPERTENSION
     Dosage: 1 DOSAGE FORMS DAILY;
     Route: 048
     Dates: start: 20100417
  3. LORAZEPAM 1 MG COMPRIMIDO [Concomitant]
     Indication: PRODUCT USED FOR UNKNOWN INDICATION
     Dosage: 1 DOSAGE FORMS DAILY;
     Route: 048
     Dates: start: 20140114
  4. OMEPRAZOL CINFAMED 20 MG CAPSULAS DURAS GASTRORESISTENTES EFG , 28 C?P [Concomitant]
     Indication: DYSPEPSIA
     Dosage: 1 DOSAGE FORMS DAILY;
     Route: 048
     Dates: start: 20111217
  5. PARACETAMOL 1.000 MG COMPRIMIDO [Concomitant]
     Indication: ARTHROPATHY
     Dosage: 1 DOSAGE FORMS DAILY;
     Route: 048
     Dates: start: 20160711

REACTIONS (11)
  - Hypersensitivity [Recovered/Resolved]
  - Cyanosis [Recovered/Resolved]
  - Pruritus allergic [Recovered/Resolved]
  - Seizure [Recovered/Resolved]
  - Syncope [Recovered/Resolved]
  - Vision blurred [Recovered/Resolved]
  - Anal sphincter atony [Recovered/Resolved]
  - Bladder sphincter atony [Recovered/Resolved]
  - Oedema [Recovered/Resolved]
  - Pallor [Recovered/Resolved]
  - Dizziness [Recovered/Resolved]

NARRATIVE: CASE EVENT DATE: 20180314
